FAERS Safety Report 26020536 (Version 1)
Quarter: 2025Q4

REPORT INFORMATION
  Report Type: Spontaneous
  Country: US (occurrence: US)
  Receive Date: 20251110
  Receipt Date: 20251110
  Transmission Date: 20260117
  Serious: No
  Sender: GALPHARM INTERNATIONAL
  Company Number: US-PERRIGO-25US011913

PATIENT
  Age: 98 Year
  Sex: Female
  Weight: 68.027 kg

DRUGS (2)
  1. POLYETHYLENE GLYCOL 3350 [Suspect]
     Active Substance: POLYETHYLENE GLYCOL 3350
     Indication: Constipation
     Dosage: 0.5 CAPFUL OF LIQUID, SINGLE
     Route: 048
     Dates: start: 20251001, end: 20251001
  2. POLYETHYLENE GLYCOL 3350 [Suspect]
     Active Substance: POLYETHYLENE GLYCOL 3350
     Dosage: 1 CAPFUL OF LIQUID, SINGLE
     Route: 048
     Dates: start: 20251002, end: 20251002

REACTIONS (2)
  - Incorrect dose administered [Recovered/Resolved]
  - Adulterated product [Recovered/Resolved]

NARRATIVE: CASE EVENT DATE: 20251001
